FAERS Safety Report 4913641-X (Version None)
Quarter: 2006Q1

REPORT INFORMATION
  Report Type: 
  Country: None (occurrence: None)
  Receive Date: 20060213
  Receipt Date: 20060202
  Transmission Date: 20060701
  Serious: Yes (Hospitalization)
  Sender: FDA-Public Use
  Company Number: UKP06000028

PATIENT
  Sex: 0

DRUGS (1)
  1. ACTONEL [Suspect]

REACTIONS (1)
  - ULCER [None]
